FAERS Safety Report 23677836 (Version 1)
Quarter: 2024Q1

REPORT INFORMATION
  Report Type: Spontaneous
  Country: HR (occurrence: HR)
  Receive Date: 20240327
  Receipt Date: 20240327
  Transmission Date: 20240409
  Serious: Yes (Other)
  Sender: FDA-Public Use
  Company Number: HR-SA-SAC20240321001133

PATIENT
  Age: 43 Year
  Sex: Female

DRUGS (1)
  1. IMIGLUCERASE [Suspect]
     Active Substance: IMIGLUCERASE
     Indication: Gaucher^s disease
     Dosage: 3200 U, QOW
     Route: 065
     Dates: start: 201005

REACTIONS (18)
  - Postpartum haemorrhage [Unknown]
  - Haemorrhage in pregnancy [Unknown]
  - Bronchiolitis [Unknown]
  - Amniotic cavity infection [Unknown]
  - Pneumonia [Unknown]
  - Thrombocytopenia [Unknown]
  - Nephrolithiasis [Unknown]
  - Bone deformity [Unknown]
  - Hepatic lesion [Recovered/Resolved]
  - Pulmonary mass [Unknown]
  - Pleural fibrosis [Recovered/Resolved]
  - Lymph node calcification [Unknown]
  - Polycystic thyroid disease [Unknown]
  - Pleural effusion [Recovering/Resolving]
  - Weight increased [Unknown]
  - C-reactive protein abnormal [Unknown]
  - Pyrexia [Unknown]
  - Maternal exposure during pregnancy [Unknown]

NARRATIVE: CASE EVENT DATE: 20170101
